FAERS Safety Report 9465121 (Version 2)
Quarter: 2013Q3

REPORT INFORMATION
  Report Type: Spontaneous
  Country: CA (occurrence: CA)
  Receive Date: 20130819
  Receipt Date: 20130819
  Transmission Date: 20140515
  Serious: Yes (Other)
  Sender: FDA-Public Use
  Company Number: CHPA2013CA012723

PATIENT
  Age: 70 Year
  Sex: Female

DRUGS (5)
  1. BUCKLEY^S COMPLETE EXTRA STRENGTH PLUS MUCUS RELIEF [Suspect]
     Indication: PULMONARY CONGESTION
     Dosage: UNK, UNK
     Route: 048
     Dates: start: 2011, end: 2013
  2. BUCKLEY^S COMPLETE LIQUID GELS PLUS MUCOUS RELIEF [Suspect]
     Indication: PULMONARY CONGESTION
     Dosage: UNK, UNK
     Route: 048
     Dates: start: 2013
  3. BUCKLEY^S MIXTURE [Suspect]
     Indication: PULMONARY CONGESTION
     Dosage: UNK, UNK
  4. CALTRATE [Concomitant]
     Indication: BONE DENSITY DECREASED
     Dosage: UNK, UNK
  5. GLUCOSAMINE [Concomitant]
     Indication: ARTHRITIS
     Dosage: UNK, UNK

REACTIONS (3)
  - Hypertension [Recovering/Resolving]
  - Blood cholesterol increased [Recovering/Resolving]
  - Drug ineffective [Unknown]
